FAERS Safety Report 7655884-0 (Version None)
Quarter: 2011Q3

REPORT INFORMATION
  Report Type: 
  Country: None (occurrence: None)
  Receive Date: 20110729
  Receipt Date: 20110721
  Transmission Date: 20111222
  Serious: Yes (Hospitalization)
  Sender: FDA-Public Use
  Company Number: 2011SP034334

PATIENT
  Age: 61 Year
  Sex: Female
  Weight: 65 kg

DRUGS (4)
  1. COTRIL FORTE [Concomitant]
  2. TEMODAL [Suspect]
     Indication: GLIOBLASTOMA
     Dosage: 130 MG, QD; 100 MG, QD. 185 MG, QD
     Dates: start: 20091012, end: 20100125
  3. TEMODAL [Suspect]
     Indication: GLIOBLASTOMA
     Dosage: 130 MG, QD; 100 MG, QD. 185 MG, QD
     Dates: start: 20100201, end: 20100301
  4. TEMODAL [Suspect]
     Indication: GLIOBLASTOMA
     Dosage: 130 MG, QD; 100 MG, QD. 185 MG, QD
     Dates: start: 20100301, end: 20100525

REACTIONS (17)
  - PNEUMONIA FUNGAL [None]
  - ASPARTATE AMINOTRANSFERASE INCREASED [None]
  - ALANINE AMINOTRANSFERASE INCREASED [None]
  - GRANULOCYTOPENIA [None]
  - C-REACTIVE PROTEIN INCREASED [None]
  - ASPERGILLUS TEST POSITIVE [None]
  - NEUTROPENIA [None]
  - COUGH [None]
  - LUNG INFILTRATION [None]
  - BLOOD IMMUNOGLOBULIN E INCREASED [None]
  - BLOOD POTASSIUM DECREASED [None]
  - ATELECTASIS [None]
  - BLOOD LACTATE DEHYDROGENASE INCREASED [None]
  - GAMMA-GLUTAMYLTRANSFERASE INCREASED [None]
  - PLATELET COUNT DECREASED [None]
  - FATIGUE [None]
  - ASTHENIA [None]
